FAERS Safety Report 8155413-1 (Version None)
Quarter: 2012Q1

REPORT INFORMATION
  Report Type: 
  Country: None (occurrence: None)
  Receive Date: 20120215
  Receipt Date: 20120130
  Transmission Date: 20120608
  Serious: Yes (Other)
  Sender: FDA-Public Use
  Company Number: 1000025007

PATIENT
  Age: 67 Year
  Sex: Male
  Weight: 50 kg

DRUGS (8)
  1. VIANI (FLUTICASONE, SALMETEROL) (FLUTICASONE, SALMETEROL) [Concomitant]
  2. VERAPAMIL [Concomitant]
  3. ROFLUMILAST (ROFLUMILAST) (TABLETS) [Suspect]
     Indication: CHRONIC OBSTRUCTIVE PULMONARY DISEASE
     Dosage: (20 DOSAGE FORMS, ONCE), ORAL
     Route: 048
     Dates: start: 20110826, end: 20110826
  4. ACE INHIBITOR (ACE INHIBITOR NOS) (ACE INHIBITOR NOS) [Concomitant]
  5. RAMIPRIL [Concomitant]
  6. ASS (ACETYLSALICYLIC ACID) (ACETYLSALICYLIC ACID) [Concomitant]
  7. BETA BLOCKER (BETA BLOCKING AGENTS) (BETA BLOCKING AGENTS) [Concomitant]
  8. SPIRIVA (TIOTROPIUM BROMIDE) (TIOTROPIUM BROMIDE) [Concomitant]

REACTIONS (4)
  - TACHYCARDIA [None]
  - INTENTIONAL OVERDOSE [None]
  - SUICIDE ATTEMPT [None]
  - ABDOMINAL PAIN [None]
